FAERS Safety Report 5184313-4 (Version None)
Quarter: 2006Q4

REPORT INFORMATION
  Report Type: 
  Country: None (occurrence: None)
  Receive Date: 20061220
  Receipt Date: 20060329
  Transmission Date: 20070319
  Serious: No
  Sender: FDA-Public Use
  Company Number: US-GLAXOSMITHKLINE-A0599466A

PATIENT
  Age: 48 Year
  Sex: Male

DRUGS (2)
  1. NICODERM CQ [Suspect]
  2. NICODERM CQ [Suspect]
     Dates: start: 20060329, end: 20060329

REACTIONS (6)
  - APPLICATION SITE ERYTHEMA [None]
  - APPLICATION SITE IRRITATION [None]
  - DIZZINESS [None]
  - DRUG INEFFECTIVE [None]
  - NICOTINE DEPENDENCE [None]
  - SENSORY DISTURBANCE [None]
